FAERS Safety Report 19028185 (Version 3)
Quarter: 2023Q2

REPORT INFORMATION
  Report Type: Report from Study
  Country: US (occurrence: US)
  Receive Date: 20210319
  Receipt Date: 20230413
  Transmission Date: 20230722
  Serious: Yes (Death, Other)
  Sender: FDA-Public Use
  Company Number: US-ACADIA PHARMACEUTICALS INC.-ACA-2021-PIM-000796

PATIENT
  Age: 75 Year
  Sex: Male

DRUGS (8)
  1. NUPLAZID [Suspect]
     Active Substance: PIMAVANSERIN TARTRATE
     Indication: Parkinson^s disease
     Dosage: 34 MILLIGRAM, QD
     Route: 048
     Dates: start: 201906
  2. NUPLAZID [Suspect]
     Active Substance: PIMAVANSERIN TARTRATE
     Dosage: 34 MILLIGRAM, QD
     Route: 048
     Dates: end: 20230321
  3. CIALIS [Suspect]
     Active Substance: TADALAFIL
     Indication: Erectile dysfunction
  4. VIAGRA [Suspect]
     Active Substance: SILDENAFIL CITRATE
     Indication: Erectile dysfunction
  5. NAPROXEN [Concomitant]
     Active Substance: NAPROXEN
  6. HYDROXYCHLOROQUINE SULFATE [Concomitant]
     Active Substance: HYDROXYCHLOROQUINE SULFATE
  7. CLONAZEPAM [Concomitant]
     Active Substance: CLONAZEPAM
  8. CLOZAPINE [Concomitant]
     Active Substance: CLOZAPINE

REACTIONS (7)
  - Death [Fatal]
  - Stress [Unknown]
  - Emotional disorder [Unknown]
  - Product dose omission issue [Recovered/Resolved]
  - Fatigue [Unknown]
  - Hallucination [Unknown]
  - Hallucination [Unknown]

NARRATIVE: CASE EVENT DATE: 20230321
